FAERS Safety Report 10772437 (Version 1)
Quarter: 2015Q1

REPORT INFORMATION
  Report Type: Report from Study
  Country: CA (occurrence: CA)
  Receive Date: 20150207
  Receipt Date: 20150207
  Transmission Date: 20150721
  Serious: Yes (Death, Hospitalization)
  Sender: FDA-Public Use
  Company Number: CA-JNJFOC-20150201637

PATIENT
  Sex: Female

DRUGS (1)
  1. TYLENOL [Suspect]
     Active Substance: ACETAMINOPHEN
     Indication: PRODUCT USED FOR UNKNOWN INDICATION
     Route: 048
     Dates: start: 20070320, end: 20070403

REACTIONS (8)
  - Toxicity to various agents [Fatal]
  - Diabetes mellitus [Fatal]
  - Overdose [Unknown]
  - Chronic kidney disease [Fatal]
  - Peripheral vascular disorder [Fatal]
  - Ischaemic enteritis [Fatal]
  - Acute respiratory failure [Fatal]
  - Neuropathy peripheral [Fatal]

NARRATIVE: CASE EVENT DATE: 2007
